FAERS Safety Report 23535073 (Version 2)
Quarter: 2024Q1

REPORT INFORMATION
  Report Type: Spontaneous
  Country: FR (occurrence: FR)
  Receive Date: 20240217
  Receipt Date: 20240226
  Transmission Date: 20240410
  Serious: Yes (Other)
  Sender: FDA-Public Use
  Company Number: FR-SAMSUNG BIOEPIS-SB-2023-13855

PATIENT
  Age: 13 Year
  Sex: Male

DRUGS (9)
  1. ADALIMUMAB [Suspect]
     Active Substance: ADALIMUMAB\ISOPROPYL ALCOHOL
     Indication: Multicentric reticulohistiocytosis
     Dosage: UNK
     Route: 065
  2. ABATACEPT [Suspect]
     Active Substance: ABATACEPT
     Indication: Multicentric reticulohistiocytosis
     Dosage: UNK
     Route: 042
  3. ETANERCEPT [Suspect]
     Active Substance: ETANERCEPT
     Indication: Multicentric reticulohistiocytosis
     Dosage: UNK
     Route: 065
  4. ETANERCEPT [Suspect]
     Active Substance: ETANERCEPT
     Indication: Juvenile idiopathic arthritis
  5. INFLIXIMAB [Suspect]
     Active Substance: INFLIXIMAB
     Indication: Multicentric reticulohistiocytosis
     Dosage: UNK
     Route: 065
  6. TOCILIZUMAB [Suspect]
     Active Substance: TOCILIZUMAB
     Indication: Multicentric reticulohistiocytosis
     Dosage: UNK
     Route: 042
  7. METHOTREXATE [Concomitant]
     Active Substance: METHOTREXATE
     Indication: Multicentric reticulohistiocytosis
     Dosage: UNK
     Route: 065
  8. METHOTREXATE [Concomitant]
     Active Substance: METHOTREXATE
     Indication: Juvenile idiopathic arthritis
  9. ZOLEDRONIC ACID [Concomitant]
     Active Substance: ZOLEDRONIC ACID
     Indication: Multicentric reticulohistiocytosis
     Dosage: UNK
     Route: 065

REACTIONS (21)
  - Rash [Unknown]
  - Hypersensitivity [Unknown]
  - Infection [Unknown]
  - Eosinophilia [Unknown]
  - Dermatitis allergic [Unknown]
  - Arthritis bacterial [Unknown]
  - Appendicitis [Unknown]
  - Pulmonary fibrosis [Unknown]
  - Condition aggravated [Unknown]
  - Interstitial lung disease [Recovering/Resolving]
  - Multicentric reticulohistiocytosis [Recovering/Resolving]
  - Juvenile idiopathic arthritis [Unknown]
  - Fatigue [Unknown]
  - Arthritis [Unknown]
  - Herpes zoster [Unknown]
  - Arthropathy [Recovered/Resolved]
  - Weight decreased [Unknown]
  - Pulmonary mass [Unknown]
  - Lung disorder [Unknown]
  - Pleural disorder [Unknown]
  - Off label use [Unknown]
